FAERS Safety Report 6751138-5 (Version None)
Quarter: 2010Q2

REPORT INFORMATION
  Report Type: 
  Country: None (occurrence: None)
  Receive Date: 20100602
  Receipt Date: 20100527
  Transmission Date: 20101027
  Serious: No
  Sender: FDA-Public Use
  Company Number: JP-JNJFOC-20100510487

PATIENT

DRUGS (3)
  1. DUROTEP MT PATCH [Suspect]
     Indication: PAIN
     Route: 062
  2. DUROTEP MT PATCH [Suspect]
     Route: 062
  3. DUROTEP [Suspect]
     Indication: PAIN
     Route: 062

REACTIONS (2)
  - DRUG DISPENSING ERROR [None]
  - NAUSEA [None]
